FAERS Safety Report 7777720-4 (Version None)
Quarter: 2011Q3

REPORT INFORMATION
  Report Type: 
  Country: None (occurrence: None)
  Receive Date: 20110926
  Receipt Date: 20110922
  Transmission Date: 20111222
  Serious: Yes (Other)
  Sender: FDA-Public Use
  Company Number: US-BIOGENIDEC-2011BI033944

PATIENT
  Age: 42 Year
  Sex: Female

DRUGS (5)
  1. CLONAZEPAM [Concomitant]
     Indication: ANXIETY
  2. GABAPENTIN [Concomitant]
     Indication: NEUROPATHY PERIPHERAL
  3. TOPAMAX [Concomitant]
     Indication: MIGRAINE
  4. TYSABRI [Suspect]
     Indication: MULTIPLE SCLEROSIS
     Route: 042
     Dates: start: 20091101
  5. CRESTOR [Concomitant]
     Indication: BLOOD CHOLESTEROL

REACTIONS (1)
  - CONVULSION [None]
